FAERS Safety Report 22917026 (Version 3)
Quarter: 2023Q4

REPORT INFORMATION
  Report Type: Spontaneous
  Country: KR (occurrence: KR)
  Receive Date: 20230907
  Receipt Date: 20231016
  Transmission Date: 20240110
  Serious: Yes (Hospitalization)
  Sender: FDA-Public Use
  Company Number: KR-GE HEALTHCARE-2023CSU007584

PATIENT
  Age: 68 Year
  Sex: Female

DRUGS (2)
  1. VISIPAQUE [Suspect]
     Active Substance: IODIXANOL
     Indication: Venogram
     Dosage: 150 ML, SINGLE
     Route: 042
     Dates: start: 20230830, end: 20230830
  2. VISIPAQUE [Suspect]
     Active Substance: IODIXANOL
     Indication: Product used for unknown indication

REACTIONS (4)
  - Hypoacusis [Recovered/Resolved]
  - Laryngeal oedema [Recovered/Resolved]
  - Altered state of consciousness [Recovered/Resolved]
  - Dyspnoea [Recovered/Resolved]

NARRATIVE: CASE EVENT DATE: 20230830
